FAERS Safety Report 5335971-2 (Version None)
Quarter: 2007Q2

REPORT INFORMATION
  Report Type: 
  Country: None (occurrence: None)
  Receive Date: 20070305
  Receipt Date: 20070224
  Transmission Date: 20071010
  Serious: Yes (Other)
  Sender: FDA-Public Use
  Company Number: USGLA-S-20060006

PATIENT
  Sex: Female

DRUGS (22)
  1. NAVELBINE [Suspect]
     Indication: METASTASES TO CENTRAL NERVOUS SYSTEM
     Dates: start: 20050916, end: 20050916
  2. NAVELBINE [Suspect]
     Indication: METASTASES TO CENTRAL NERVOUS SYSTEM
     Dates: start: 20050923, end: 20050923
  3. NAVELBINE [Suspect]
     Indication: METASTASES TO CENTRAL NERVOUS SYSTEM
     Dates: start: 20050930, end: 20050930
  4. NAVELBINE [Suspect]
     Indication: METASTASES TO CENTRAL NERVOUS SYSTEM
     Dates: start: 20051007, end: 20051007
  5. NAVELBINE [Suspect]
     Indication: METASTASES TO CENTRAL NERVOUS SYSTEM
     Dates: start: 20051014, end: 20051014
  6. NAVELBINE [Suspect]
     Indication: METASTASES TO CENTRAL NERVOUS SYSTEM
     Dates: start: 20051104, end: 20051104
  7. NAVELBINE [Suspect]
     Indication: METASTASES TO CENTRAL NERVOUS SYSTEM
     Dates: start: 20051114, end: 20051114
  8. NAVELBINE [Suspect]
     Indication: METASTASES TO CENTRAL NERVOUS SYSTEM
     Dates: start: 20051209, end: 20051209
  9. CISPLATIN [Suspect]
     Indication: METASTASES TO CENTRAL NERVOUS SYSTEM
     Dates: start: 20050916, end: 20050916
  10. CISPLATIN [Suspect]
     Indication: METASTASES TO CENTRAL NERVOUS SYSTEM
     Dates: start: 20051007, end: 20051007
  11. CISPLATIN [Suspect]
     Indication: METASTASES TO CENTRAL NERVOUS SYSTEM
     Dates: start: 20051104, end: 20051104
  12. CISPLATIN [Suspect]
     Indication: METASTASES TO CENTRAL NERVOUS SYSTEM
     Dates: start: 20051209, end: 20051209
  13. TEMODAL [Suspect]
     Indication: METASTASES TO CENTRAL NERVOUS SYSTEM
     Dates: start: 20050818, end: 20050914
  14. RADIATION THERAPY [Suspect]
     Indication: METASTASES TO CENTRAL NERVOUS SYSTEM
     Dates: start: 20050818, end: 20050831
  15. URBANYL [Concomitant]
  16. DEPAKENE [Concomitant]
  17. DAFALGAN [Concomitant]
  18. INIPOMP [Concomitant]
  19. DIFFU K [Concomitant]
  20. ATARAX [Concomitant]
  21. LEXOMIL [Concomitant]
  22. METOCLOPRAMIDE [Concomitant]

REACTIONS (2)
  - LEUKOPENIA [None]
  - NEUTROPENIA [None]
